FAERS Safety Report 5138650-X (Version None)
Quarter: 2006Q4

REPORT INFORMATION
  Report Type: 
  Country: None (occurrence: None)
  Receive Date: 20061024
  Receipt Date: 20061010
  Transmission Date: 20070319
  Serious: Yes (Other)
  Sender: FDA-Public Use
  Company Number: 2006-02615

PATIENT
  Age: 74 Year
  Sex: Female
  Weight: 65.6 kg

DRUGS (11)
  1. VELCADE [Suspect]
     Indication: NON-SMALL CELL LUNG CANCER
     Dosage: 1.30MG/M2, IV BOLUS
     Route: 040
     Dates: start: 20060815, end: 20060822
  2. SORAFENIB                  (SORAFENIB) [Suspect]
     Indication: NON-SMALL CELL LUNG CANCER
     Dosage: 200.00 MG, ORAL
     Route: 048
     Dates: start: 20060815, end: 20060825
  3. ACETAMINOPHEN [Concomitant]
  4. ASPIRIN [Concomitant]
  5. COMBIVENT [Concomitant]
  6. HYDROCHLOROTHIAZIDE [Concomitant]
  7. MULTIVITAMIN                         (VITAMIN NOS) [Concomitant]
  8. OMEPRAZOLE [Concomitant]
  9. PREDNISONE TAB [Concomitant]
  10. PROPOXYPHENE NAPSYLATE W/ ACETAMINOPHEN [Concomitant]
  11. VERAPAMIL [Concomitant]

REACTIONS (9)
  - ABDOMINAL PAIN [None]
  - ANOREXIA [None]
  - DIARRHOEA [None]
  - EXFOLIATIVE RASH [None]
  - FATIGUE [None]
  - MUCOSAL INFLAMMATION [None]
  - NAUSEA [None]
  - STOMATITIS [None]
  - VOMITING [None]
